FAERS Safety Report 7725152-7 (Version None)
Quarter: 2011Q3

REPORT INFORMATION
  Report Type: 
  Country: None (occurrence: None)
  Receive Date: 20110901
  Receipt Date: 20110823
  Transmission Date: 20111222
  Serious: Yes (Hospitalization)
  Sender: FDA-Public Use
  Company Number: US-US-EMD SERONO, INC.-7079318

PATIENT
  Sex: Female

DRUGS (3)
  1. REBIF [Suspect]
     Indication: MULTIPLE SCLEROSIS
     Route: 058
     Dates: start: 20030508
  2. UNSPECIFIED ANTIBIOTIC [Concomitant]
     Indication: URINARY TRACT INFECTION
  3. UNSPECIFIED MEDICATION [Concomitant]
     Indication: URINARY TRACT INFECTION

REACTIONS (5)
  - THROMBOSIS [None]
  - URINARY TRACT INFECTION [None]
  - BACK PAIN [None]
  - FALL [None]
  - MUSCULAR WEAKNESS [None]
